FAERS Safety Report 4436803-7 (Version None)
Quarter: 2004Q3

REPORT INFORMATION
  Report Type: 
  Country: None (occurrence: None)
  Receive Date: 20040830
  Receipt Date: 20040817
  Transmission Date: 20050211
  Serious: Yes (Other)
  Sender: FDA-Public Use
  Company Number: 200412571EU

PATIENT
  Age: 60 Year
  Sex: Female
  Weight: 60 kg

DRUGS (1)
  1. TRENTAL [Suspect]
     Indication: PERIPHERAL OCCLUSIVE DISEASE
     Route: 048
     Dates: end: 20040803

REACTIONS (1)
  - RETINAL HAEMORRHAGE [None]
